FAERS Safety Report 9470147 (Version 1)
Quarter: 2013Q3

REPORT INFORMATION
  Report Type: Spontaneous
  Country: US (occurrence: US)
  Receive Date: 20130822
  Receipt Date: 20130822
  Transmission Date: 20140515
  Serious: Yes (Hospitalization)
  Sender: FDA-Public Use
  Company Number: US-COVIDIEN/TYCO HEALTHCARE/MALLINCKRODT-T201302700

PATIENT
  Age: 6 Year
  Sex: Female

DRUGS (3)
  1. GABLOFEN [Suspect]
     Indication: MUSCLE SPASTICITY
     Dosage: 680 MCG/DAY
     Route: 037
  2. GABLOFEN [Suspect]
     Dosage: 100 MCG/DAY
     Route: 037
  3. GABLOFEN [Suspect]
     Dosage: 151 MCG/DAY
     Route: 037

REACTIONS (1)
  - Cerebrospinal fluid leakage [Unknown]
